FAERS Safety Report 6639737-2 (Version None)
Quarter: 2010Q1

REPORT INFORMATION
  Report Type: 
  Country: None (occurrence: None)
  Receive Date: 20100318
  Receipt Date: 20100305
  Transmission Date: 20100710
  Serious: Yes (Other)
  Sender: FDA-Public Use
  Company Number: PHHY2009DE40806

PATIENT
  Sex: Female

DRUGS (6)
  1. ACLASTA [Suspect]
     Indication: OSTEOPOROSIS
     Dosage: 5 MG, UNK
     Route: 042
     Dates: start: 20090901
  2. TRAMAL [Concomitant]
  3. LYRICA [Concomitant]
  4. PREDNISOLON [Concomitant]
  5. DIOVAN HCT [Concomitant]
  6. NEXIUM [Concomitant]

REACTIONS (2)
  - BLISTER [None]
  - PRURITUS [None]
